FAERS Safety Report 15916736 (Version 4)
Quarter: 2019Q1

REPORT INFORMATION
  Report Type: Spontaneous
  Country: FR (occurrence: FR)
  Receive Date: 20190205
  Receipt Date: 20190220
  Transmission Date: 20190417
  Serious: Yes (Other)
  Sender: FDA-Public Use
  Company Number: FR-CONCORDIA PHARMACEUTICALS INC.-E2B_00018530

PATIENT
  Sex: Male

DRUGS (5)
  1. LAMICTAL [Concomitant]
     Active Substance: LAMOTRIGINE
     Indication: EPILEPTIC ENCEPHALOPATHY
     Dosage: 150 MG
     Route: 065
  2. RIVOTRIL [Concomitant]
     Active Substance: CLONAZEPAM
     Indication: PRODUCT USED FOR UNKNOWN INDICATION
     Route: 065
  3. ZONEGRAN [Suspect]
     Active Substance: ZONISAMIDE
     Route: 048
     Dates: start: 2016, end: 201901
  4. FYCOMPA [Concomitant]
     Active Substance: PERAMPANEL
     Indication: EPILEPTIC ENCEPHALOPATHY
     Route: 048
     Dates: start: 2014
  5. ZONEGRAN [Suspect]
     Active Substance: ZONISAMIDE
     Indication: EPILEPTIC ENCEPHALOPATHY
     Dosage: UNKNOWN
     Route: 048
     Dates: start: 2008

REACTIONS (2)
  - Pancreatitis acute [Recovering/Resolving]
  - Product use in unapproved indication [Unknown]

NARRATIVE: CASE EVENT DATE: 2008
